FAERS Safety Report 7919752-9 (Version None)
Quarter: 2011Q4

REPORT INFORMATION
  Report Type: 
  Country: None (occurrence: None)
  Receive Date: 20111117
  Receipt Date: 20111109
  Transmission Date: 20120403
  Serious: Yes (Hospitalization)
  Sender: FDA-Public Use
  Company Number: KR-ASTELLAS-2011JP008195

PATIENT
  Sex: Female
  Weight: 61.2 kg

DRUGS (7)
  1. TACROLIMUS [Suspect]
     Indication: LUPUS NEPHRITIS
     Dosage: 2 MG, UNKNOWN/D
     Route: 048
     Dates: start: 20110804
  2. INHIBACE [Concomitant]
     Dosage: UNK
     Route: 065
     Dates: start: 20110825
  3. HYDROXYCHLOROQUINE SULFATE [Concomitant]
     Dosage: UNK
     Route: 065
     Dates: start: 20070404
  4. NISOLONE [Concomitant]
     Dosage: UNK
     Route: 065
     Dates: start: 20070704
  5. FOLIC ACID [Concomitant]
     Dosage: UNK
     Route: 065
     Dates: start: 20090623
  6. BAMIDE [Concomitant]
     Dosage: UNK
     Route: 065
     Dates: start: 20110714
  7. AMOSARTAN [Concomitant]
     Dosage: UNK
     Route: 065
     Dates: start: 20110908

REACTIONS (3)
  - PYELONEPHRITIS ACUTE [None]
  - URETERITIS [None]
  - HYDRONEPHROSIS [None]
